FAERS Safety Report 13130836 (Version 1)
Quarter: 2017Q1

REPORT INFORMATION
  Report Type: Spontaneous
  Country: FR (occurrence: FR)
  Receive Date: 20170119
  Receipt Date: 20170119
  Transmission Date: 20170428
  Serious: Yes (Hospitalization, Other)
  Sender: FDA-Public Use
  Company Number: FR-BAXTER-2017BAX001236

PATIENT
  Sex: Female

DRUGS (6)
  1. ENDOXAN 1000 MG, POUDRE POUR SOLUTION INJECTABLE [Suspect]
     Active Substance: CYCLOPHOSPHAMIDE
     Indication: BREAST CANCER RECURRENT
     Dosage: 6 COURSES OF FEC PROTOCOL
     Route: 065
     Dates: start: 2002
  2. ENDOXAN 1000 MG, POUDRE POUR SOLUTION INJECTABLE [Suspect]
     Active Substance: CYCLOPHOSPHAMIDE
     Dosage: INITIATION OF PROTOCOL FOR 10 COURSES
     Route: 065
     Dates: start: 20120404, end: 20121012
  3. AVASTIN [Suspect]
     Active Substance: BEVACIZUMAB
     Indication: BREAST CANCER
     Dosage: 3 COURSES
     Route: 065
     Dates: start: 20120118, end: 20120229
  4. EPIRUBICIN [Suspect]
     Active Substance: EPIRUBICIN
     Indication: BREAST CANCER
     Dosage: 6 COURSES OF FEC PROTOCOL
     Route: 065
     Dates: start: 2002
  5. 5-FLUOROURACIL [Suspect]
     Active Substance: FLUOROURACIL
     Indication: BREAST CANCER
     Dosage: 6 COURSES OF FEC PROTOCOL
     Route: 065
     Dates: start: 2002
  6. MYOCET [Suspect]
     Active Substance: DOXORUBICIN
     Indication: BREAST CANCER
     Dosage: INITIATION OF PROTOCOL FOR 10 COURSES
     Route: 065
     Dates: start: 20120404, end: 20120404

REACTIONS (5)
  - Ejection fraction decreased [Unknown]
  - Breast cancer recurrent [Unknown]
  - Cardiac failure [Unknown]
  - Metastases to lung [Unknown]
  - Lymphangiosis carcinomatosa [Unknown]

NARRATIVE: CASE EVENT DATE: 2011
